FAERS Safety Report 22972872 (Version 2)
Quarter: 2023Q4

REPORT INFORMATION
  Report Type: Spontaneous
  Country: FR (occurrence: FR)
  Receive Date: 20230922
  Receipt Date: 20231005
  Transmission Date: 20240110
  Serious: Yes (Other)
  Sender: FDA-Public Use
  Company Number: FR-KYOWAKIRIN-2023KK014642

PATIENT

DRUGS (1)
  1. POTELIGEO [Suspect]
     Active Substance: MOGAMULIZUMAB-KPKC
     Indication: Cutaneous T-cell lymphoma stage IV
     Dosage: UNK
     Route: 065
     Dates: start: 201910

REACTIONS (3)
  - Paraplegia [Unknown]
  - Granuloma [Recovered/Resolved with Sequelae]
  - Back pain [Unknown]

NARRATIVE: CASE EVENT DATE: 20211101
